FAERS Safety Report 5390477-X (Version None)
Quarter: 2007Q3

REPORT INFORMATION
  Report Type: 
  Country: None (occurrence: None)
  Receive Date: 20070718
  Receipt Date: 20060822
  Transmission Date: 20080115
  Serious: No
  Sender: FDA-Public Use
  Company Number: US-KINGPHARMUSA00001-K200601082

PATIENT

DRUGS (4)
  1. LEVOXYL [Suspect]
     Indication: HYPOTHYROIDISM
     Dosage: 25 MCG, QD
     Route: 048
     Dates: start: 20060101, end: 20060501
  2. LEVOXYL [Suspect]
     Dosage: 50 MCG, QD
     Route: 048
     Dates: start: 20060501, end: 20060818
  3. LEVOXYL [Suspect]
     Route: 048
     Dates: start: 20060822
  4. ATENOLOL [Concomitant]
     Indication: HYPERTENSION
     Dosage: 50 MG, QD
     Route: 048

REACTIONS (3)
  - INSOMNIA [None]
  - IRRITABILITY [None]
  - PALPITATIONS [None]
